FAERS Safety Report 4680445-5 (Version None)
Quarter: 2005Q2

REPORT INFORMATION
  Report Type: 
  Country: None (occurrence: None)
  Receive Date: 20050601
  Receipt Date: 20050517
  Transmission Date: 20051028
  Serious: Yes (Hospitalization)
  Sender: FDA-Public Use
  Company Number: GBS050517317

PATIENT
  Age: 6 Year
  Sex: Female
  Weight: 21 kg

DRUGS (2)
  1. STRATTERA [Suspect]
     Indication: PSYCHOMOTOR HYPERACTIVITY
     Dosage: 40 MG DAY
     Dates: start: 20050902
  2. CONCERTA [Concomitant]

REACTIONS (5)
  - CONDITION AGGRAVATED [None]
  - DISTURBANCE IN ATTENTION [None]
  - PRESCRIBED OVERDOSE [None]
  - PSYCHOMOTOR HYPERACTIVITY [None]
  - TEARFULNESS [None]
